FAERS Safety Report 16836070 (Version 2)
Quarter: 2019Q3

REPORT INFORMATION
  Report Type: Report from Study
  Country: None (occurrence: BE)
  Receive Date: 20190921
  Receipt Date: 20190929
  Transmission Date: 20191005
  Serious: Yes (Hospitalization)
  Sender: FDA-Public Use
  Company Number: BE-ABBVIE-19K-013-2862070-00

PATIENT
  Sex: Male

DRUGS (6)
  1. DUODOPA [Suspect]
     Active Substance: CARBIDOPA\LEVODOPA
     Dosage: MD= 7ML, CD= 2.9ML/HR DURING 16HRS, ED= 4ML
     Route: 050
     Dates: start: 20190708
  2. DUODOPA [Suspect]
     Active Substance: CARBIDOPA\LEVODOPA
     Indication: PARKINSON^S DISEASE
     Dosage: MD= 7ML, CD= 4.2ML/HR DURING 16HRS, ED= 4ML
     Route: 050
     Dates: start: 20110228, end: 20110303
  3. DUODOPA [Suspect]
     Active Substance: CARBIDOPA\LEVODOPA
     Dosage: MD= 7ML, CD= 3.2ML/HR DURING 16HRS, ED= 4ML
     Route: 050
     Dates: start: 20190213, end: 20190708
  4. DUODOPA [Suspect]
     Active Substance: CARBIDOPA\LEVODOPA
     Dosage: DOSES CONTINUOUSLY MONITORED AND ADAPTED
     Route: 050
     Dates: start: 20110303, end: 20190213
  5. PROLOPA [Concomitant]
     Active Substance: BENSERAZIDE\LEVODOPA
     Indication: PARKINSON^S DISEASE
     Dosage: 100MG/25MG; 0.5 TABLET 4 TIMES A DAY/7 TABLETS IN 500CC OF WATER/50CC AT A TIME (125 DISP)
     Route: 048
  6. PROLOPA [Concomitant]
     Active Substance: BENSERAZIDE\LEVODOPA
     Dosage: FORM STRENGTH: 100MG/25MG; RESCUE MEDICATION

REACTIONS (5)
  - Dyskinesia [Not Recovered/Not Resolved]
  - Device alarm issue [Unknown]
  - Abnormal dreams [Unknown]
  - Drug abuse [Unknown]
  - Stoma site erythema [Recovered/Resolved]
